FAERS Safety Report 8294252-8 (Version None)
Quarter: 2012Q2

REPORT INFORMATION
  Report Type: 
  Country: None (occurrence: None)
  Receive Date: 20120418
  Receipt Date: 20120411
  Transmission Date: 20120825
  Serious: Yes (Hospitalization)
  Sender: FDA-Public Use
  Company Number: US-JNJFOC-20120405106

PATIENT
  Sex: Female
  Weight: 77.11 kg

DRUGS (3)
  1. ^DIABETES MEDICATION^ [Concomitant]
     Indication: DIABETES MELLITUS
     Route: 065
  2. STELARA [Suspect]
     Indication: PSORIASIS
     Route: 058
     Dates: start: 20100101
  3. CHOLESTEROL MEDICATION [Concomitant]
     Indication: BLOOD TRIGLYCERIDES INCREASED
     Route: 065

REACTIONS (5)
  - HAEMOGLOBIN DECREASED [None]
  - ARTERIAL RUPTURE [None]
  - PSORIASIS [None]
  - DUODENAL PERFORATION [None]
  - PRESYNCOPE [None]
